FAERS Safety Report 24779536 (Version 1)
Quarter: 2024Q4

REPORT INFORMATION
  Report Type: Spontaneous
  Country: US (occurrence: None)
  Receive Date: 20241226
  Receipt Date: 20241226
  Transmission Date: 20250115
  Serious: Yes (Hospitalization)
  Sender: Public
  Company Number: None

PATIENT
  Age: 66 Year
  Sex: Female

DRUGS (11)
  1. GLATIRAMER [Suspect]
     Active Substance: GLATIRAMER
     Indication: Plasma cell myeloma
     Dosage: FREQUENCY : 3 TIMES A WEEK;?
     Route: 058
     Dates: start: 20171110
  2. ARIPIPRAZOLE TAB 2MG [Concomitant]
  3. ATENOLOL TAB 50MG [Concomitant]
  4. AZITHROMYCIN [Concomitant]
     Active Substance: AZITHROMYCIN
  5. BACLOFEN TAB 20MG [Concomitant]
  6. CALCIUM + D CHW [Concomitant]
  7. CALCIUM CARB TAB 600MG [Concomitant]
  8. CARDIZEM LA TAB 180MG [Concomitant]
  9. CENTRUM TAB SILVER [Concomitant]
  10. CLEOCIN CAP 75MG [Concomitant]
  11. CLOBETASOL OIN 0.05% [Concomitant]

REACTIONS (5)
  - Mobility decreased [None]
  - Fall [None]
  - Osteoporosis [None]
  - Alopecia [None]
  - Fatigue [None]

NARRATIVE: CASE EVENT DATE: 20241201
